FAERS Safety Report 8624389-2 (Version None)
Quarter: 2012Q3

REPORT INFORMATION
  Report Type: 
  Country: None (occurrence: None)
  Receive Date: 20120827
  Receipt Date: 20120822
  Transmission Date: 20120928
  Serious: Yes (Other)
  Sender: FDA-Public Use
  Company Number: JP-PFIZER INC-2012206363

PATIENT
  Age: 4 Decade
  Sex: Male

DRUGS (4)
  1. LYRICA [Suspect]
     Dosage: UNK
     Route: 048
     Dates: start: 20110101
  2. ACETAMINOPHEN [Concomitant]
     Dosage: UNK
  3. ANTI-DEPRESSANTS DRUG [Concomitant]
  4. OTHER HYPNOTICS AND SEDATIVES [Concomitant]

REACTIONS (2)
  - ROAD TRAFFIC ACCIDENT [None]
  - FALL [None]
